FAERS Safety Report 8810040 (Version 2)
Quarter: 2012Q4

REPORT INFORMATION
  Report Type: 
  Country: US (occurrence: US)
  Receive Date: 20120926
  Receipt Date: 20121108
  Transmission Date: 20130627
  Serious: Yes (Other)
  Sender: FDA-Public Use
  Company Number: US-GLAXOSMITHKLINE-A0993868A

PATIENT
  Age: 82 Year
  Sex: Male

DRUGS (2)
  1. ADVAIR [Suspect]
     Indication: LUNG DISORDER
     Dosage: 1PUFF Twice per day
     Route: 055
     Dates: start: 1992
  2. SPIRIVA [Concomitant]

REACTIONS (7)
  - Myocardial infarction [Unknown]
  - Chest pain [Recovered/Resolved]
  - Dyspnoea [Recovered/Resolved]
  - Dizziness [Recovered/Resolved]
  - Dizziness [Recovered/Resolved]
  - Malaise [Recovered/Resolved]
  - Product quality issue [Unknown]
